FAERS Safety Report 6790080-0 (Version None)
Quarter: 2010Q2

REPORT INFORMATION
  Report Type: 
  Country: None (occurrence: None)
  Receive Date: 20100624
  Receipt Date: 20100621
  Transmission Date: 20101027
  Serious: No
  Sender: FDA-Public Use
  Company Number: US-BAYER-201017150BCC

PATIENT
  Age: 72 Year
  Sex: Female
  Weight: 64 kg

DRUGS (3)
  1. ALEVE [Suspect]
     Indication: ARTHRALGIA
     Dosage: UNIT DOSE: 220 MG
     Route: 048
     Dates: start: 20100621
  2. ATENOLOL [Concomitant]
     Dosage: TOOK AROUND 7 AM
     Route: 065
  3. HYDROCHLOROTHIAZIDE [Concomitant]
     Dosage: TOOK AROUND 7 AM
     Route: 065

REACTIONS (1)
  - TINNITUS [None]
